FAERS Safety Report 25986671 (Version 1)
Quarter: 2025Q4

REPORT INFORMATION
  Report Type: Spontaneous
  Country: JP (occurrence: JP)
  Receive Date: 20251031
  Receipt Date: 20251031
  Transmission Date: 20260117
  Serious: Yes (Hospitalization)
  Sender: NEUROCRINE BIOSCIENCES
  Company Number: JP-MTPC-MTPC2025-0019124

PATIENT
  Age: 6 Decade
  Sex: Female

DRUGS (8)
  1. VALBENAZINE [Suspect]
     Active Substance: VALBENAZINE
     Indication: Product used for unknown indication
     Dosage: 40 MILLIGRAM, UNKNOWN
     Route: 048
  2. PALIPERIDONE PALMITATE [Concomitant]
     Active Substance: PALIPERIDONE PALMITATE
     Indication: Schizophrenia
     Dosage: 150 MILLIGRAM, UNKNOWN
     Route: 030
     Dates: start: 202402
  3. PALIPERIDONE PALMITATE [Concomitant]
     Active Substance: PALIPERIDONE PALMITATE
     Dosage: 100 MILLIGRAM, UNKNOWN
     Route: 030
  4. PALIPERIDONE PALMITATE [Concomitant]
     Active Substance: PALIPERIDONE PALMITATE
     Dosage: 150 MILLIGRAM, Q4WEEKS
     Route: 030
     Dates: start: 202403
  5. PALIPERIDONE PALMITATE [Concomitant]
     Active Substance: PALIPERIDONE PALMITATE
     Dosage: 100 MILLIGRAM, Q4WEEKS
     Route: 030
     Dates: start: 202505
  6. PALIPERIDONE PALMITATE [Concomitant]
     Active Substance: PALIPERIDONE PALMITATE
     Dosage: 75 MILLIGRAM, Q4WEEKS
     Route: 030
     Dates: start: 202506
  7. PALIPERIDONE PALMITATE [Concomitant]
     Active Substance: PALIPERIDONE PALMITATE
     Dosage: 50 MILLIGRAM, Q4WEEKS
     Route: 030
     Dates: start: 202507, end: 202507
  8. INVEGA [Concomitant]
     Active Substance: PALIPERIDONE
     Indication: Schizophrenia
     Dosage: 6 MILLIGRAM, UNKNOWN
     Route: 048
     Dates: start: 202402, end: 202507

REACTIONS (2)
  - General physical health deterioration [Unknown]
  - Off label use [Unknown]
